FAERS Safety Report 23030473 (Version 1)
Quarter: 2023Q4

REPORT INFORMATION
  Report Type: Report from Study
  Country: EG (occurrence: EG)
  Receive Date: 20231005
  Receipt Date: 20231005
  Transmission Date: 20240109
  Serious: Yes (Other)
  Sender: FDA-Public Use
  Company Number: EG-002147023-NVSC2023EG145212

PATIENT
  Age: 11 Year
  Sex: Male

DRUGS (4)
  1. OMNITROPE [Suspect]
     Active Substance: SOMATROPIN
     Indication: Growth hormone deficiency
     Dosage: 1.4 MG, QD
     Route: 058
     Dates: start: 20211115
  2. OMNITROPE [Suspect]
     Active Substance: SOMATROPIN
     Dosage: 1.5 MG, QD (DUE TO NORMAL GROWTH)
     Route: 058
     Dates: start: 20211115
  3. VIDROP [Concomitant]
     Indication: Malnutrition
     Dosage: A FILLED DROPPER PER DAY
     Route: 048
     Dates: start: 20211115
  4. ZINC [Concomitant]
     Active Substance: ZINC
     Indication: Malnutrition
     Dosage: 5 CM, QD (2-5 CM PER DAY)
     Route: 048
     Dates: start: 20211115

REACTIONS (3)
  - Growth retardation [Not Recovered/Not Resolved]
  - Product availability issue [Not Recovered/Not Resolved]
  - Product dose omission issue [Recovered/Resolved]

NARRATIVE: CASE EVENT DATE: 20230501
